FAERS Safety Report 5643437-5 (Version None)
Quarter: 2008Q1

REPORT INFORMATION
  Report Type: 
  Country: None (occurrence: None)
  Receive Date: 20080131
  Receipt Date: 20071116
  Transmission Date: 20080703
  Serious: Yes (Hospitalization)
  Sender: FDA-Public Use
  Company Number: 163-21880-07111079

PATIENT
  Age: 82 Year
  Sex: Male

DRUGS (4)
  1. REVLIMID [Suspect]
     Indication: MULTIPLE MYELOMA
     Dosage: 20 MG, 2 IN 1D, ORAL ; 20 MG, 2 IN 1 D, ORAL ; 20 MG, 2 IN 1 D, ORAL
     Route: 048
     Dates: start: 20070918
  2. REVLIMID [Suspect]
     Indication: MULTIPLE MYELOMA
     Dosage: 20 MG, 2 IN 1D, ORAL ; 20 MG, 2 IN 1 D, ORAL ; 20 MG, 2 IN 1 D, ORAL
     Route: 048
     Dates: start: 20071019
  3. REVLIMID [Suspect]
     Indication: MULTIPLE MYELOMA
     Dosage: 20 MG, 2 IN 1D, ORAL ; 20 MG, 2 IN 1 D, ORAL ; 20 MG, 2 IN 1 D, ORAL
     Route: 048
     Dates: start: 20071108
  4. AVELOX [Concomitant]

REACTIONS (8)
  - BALANCE DISORDER [None]
  - BLOOD SODIUM DECREASED [None]
  - CANDIDIASIS [None]
  - CONFUSIONAL STATE [None]
  - FALL [None]
  - HAEMOPTYSIS [None]
  - INTERNATIONAL NORMALISED RATIO INCREASED [None]
  - PNEUMONIA [None]
